FAERS Safety Report 25894655 (Version 1)
Quarter: 2025Q4

REPORT INFORMATION
  Report Type: Spontaneous
  Country: US (occurrence: US)
  Receive Date: 20251008
  Receipt Date: 20251008
  Transmission Date: 20260118
  Serious: No
  Sender: ALEXION PHARMACEUTICALS
  Company Number: US-AstraZeneca-CH-00965110A

PATIENT
  Sex: Female

DRUGS (2)
  1. FASENRA [Suspect]
     Active Substance: BENRALIZUMAB
     Route: 065
  2. FASENRA [Suspect]
     Active Substance: BENRALIZUMAB

REACTIONS (7)
  - Headache [Unknown]
  - Pruritus [Recovered/Resolved]
  - Fatigue [Unknown]
  - Dysphonia [Unknown]
  - Burning sensation [Unknown]
  - Arthralgia [Unknown]
  - Paraesthesia oral [Recovered/Resolved]
